FAERS Safety Report 24641774 (Version 1)
Quarter: 2024Q4

REPORT INFORMATION
  Report Type: Spontaneous
  Country: US (occurrence: None)
  Receive Date: 20241119
  Receipt Date: 20241119
  Transmission Date: 20250114
  Serious: Yes (Hospitalization)
  Sender: Public
  Company Number: None

PATIENT
  Age: 20 Year
  Sex: Male

DRUGS (1)
  1. SULFAMETHOXAZOLE\TRIMETHOPRIM [Suspect]
     Active Substance: SULFAMETHOXAZOLE\TRIMETHOPRIM
     Indication: Urinary tract infection
     Dates: start: 20241117, end: 20241119

REACTIONS (5)
  - Dyspnoea [None]
  - Abdominal pain upper [None]
  - Dizziness [None]
  - Fear [None]
  - Anxiety [None]

NARRATIVE: CASE EVENT DATE: 20241119
